FAERS Safety Report 12225581 (Version 1)
Quarter: 2016Q1

REPORT INFORMATION
  Report Type: Spontaneous
  Country: US (occurrence: None)
  Receive Date: 20160330
  Receipt Date: 20160330
  Transmission Date: 20160526
  Serious: No
  Sender: FDA-Public Use
  Company Number: None

PATIENT
  Sex: Male

DRUGS (1)
  1. HUMIRA [Suspect]
     Active Substance: ADALIMUMAB
     Indication: IRIDOCYCLITIS
     Dosage: 40MG EVERY OTHER WEEK
     Route: 058
     Dates: start: 20150908, end: 20151001

REACTIONS (2)
  - Unevaluable event [None]
  - Therapy cessation [None]
